FAERS Safety Report 4325533-8 (Version None)
Quarter: 2004Q1

REPORT INFORMATION
  Report Type: 
  Country: None (occurrence: None)
  Receive Date: 20040324
  Receipt Date: 20040312
  Transmission Date: 20041129
  Serious: Yes (Hospitalization, Disabling, Other)
  Sender: FDA-Public Use
  Company Number: 001-0945-M0200657

PATIENT
  Age: 44 Year
  Sex: Female
  Weight: 54.4316 kg

DRUGS (29)
  1. NEURONTIN [Suspect]
     Indication: BIPOLAR DISORDER
     Dosage: 1800 MG (DAILY), ORAL
     Route: 048
     Dates: start: 19990512, end: 20020401
  2. LAMOTRIGINE [Concomitant]
  3. LITHIUM CARBONATE [Concomitant]
  4. CLONAZEPAM [Concomitant]
  5. METHYLPHENIDATE HCL [Concomitant]
  6. LEVOTHYROXINE SODIUM [Concomitant]
  7. LIOTHYRONINE SODIUM [Concomitant]
  8. SERTRALINE HCL [Concomitant]
  9. PILOCARPINE HYDROCHLORIDE (PILOCARPINE HYDROCHLORIDE) [Concomitant]
  10. METOPROLOL SUCCINATE [Concomitant]
  11. LANSOPRAZOLE [Concomitant]
  12. HYOSCYAMINE SULFATE AND PHENOBARBITAL [Concomitant]
  13. DILTIAZEM HYDROCHLORIDE [Concomitant]
  14. BUPROPION HYDROCHLORIDE [Concomitant]
  15. CELEBREX [Concomitant]
  16. QUETIAPINE FUMARATE (QUETIAPINE FUMARATE) [Concomitant]
  17. METOPROLOL TARTRATE [Concomitant]
  18. CITALOPRAM HYDROBROMIDE (CITALOPRAM HYDROBROMIDE) [Concomitant]
  19. HYOSCYAMINE SULFATE AND PHENOBARBITAL [Concomitant]
  20. OLANZAPINE [Concomitant]
  21. OMEPRAZOLE [Concomitant]
  22. NASAL PREPARATIONS [Concomitant]
  23. NEFAZODONE HCL [Concomitant]
  24. TOTOLIN (GUAIFENESIN, PHENYLPROPANOLAMINE HYDROCHLORIDE) [Concomitant]
  25. MECLOZINE (MECLOZINE) [Concomitant]
  26. FLUTICASONE PROPIONATE [Concomitant]
  27. TRIMETHOBENZAMIDE HYDROCHLORIDE (TRIMETHOBENZAMIDE HYDROCHLORIDE) [Concomitant]
  28. RESPAIRE-SR-120 (GUAIFENESIN, PSEUDOEPHEDRINE HYDROCHLORIDE) [Concomitant]
  29. RISPERIDONE [Concomitant]

REACTIONS (46)
  - ABDOMINAL PAIN [None]
  - ANKLE FRACTURE [None]
  - ANXIETY [None]
  - APHONIA [None]
  - ASTHMA [None]
  - ATRIAL FLUTTER [None]
  - ATRIAL TACHYCARDIA [None]
  - ATRIOVENTRICULAR BLOCK [None]
  - BLOOD UREA INCREASED [None]
  - BRAIN DAMAGE [None]
  - CHEST PAIN [None]
  - CONVULSION [None]
  - DEAFNESS [None]
  - DEPRESSION [None]
  - DIARRHOEA [None]
  - DRUG HYPERSENSITIVITY [None]
  - DYSPNOEA [None]
  - ECCHYMOSIS [None]
  - FACIAL BONES FRACTURE [None]
  - FATIGUE [None]
  - HAND FRACTURE [None]
  - INCREASED UPPER AIRWAY SECRETION [None]
  - IRRITABLE BOWEL SYNDROME [None]
  - LOSS OF CONSCIOUSNESS [None]
  - MEAN CELL HAEMOGLOBIN [None]
  - MENTAL DISORDER [None]
  - NAUSEA [None]
  - OEDEMA PERIPHERAL [None]
  - OVERDOSE [None]
  - PHARYNGITIS [None]
  - PROPIONIBACTERIUM INFECTION [None]
  - PRURITUS [None]
  - PSORIASIS [None]
  - RED BLOOD CELL COUNT DECREASED [None]
  - RHINITIS ALLERGIC [None]
  - ROAD TRAFFIC ACCIDENT [None]
  - SKIN ULCER [None]
  - SPEECH DISORDER [None]
  - STRESS SYMPTOMS [None]
  - SWOLLEN TONGUE [None]
  - SYNCOPE [None]
  - THERMAL BURN [None]
  - TINNITUS [None]
  - VIRAL SINUSITIS [None]
  - WHITE BLOOD CELL COUNT DECREASED [None]
  - WRIST FRACTURE [None]
